FAERS Safety Report 5347603-8 (Version None)
Quarter: 2007Q2

REPORT INFORMATION
  Report Type: 
  Country: None (occurrence: None)
  Receive Date: 20070606
  Receipt Date: 20070531
  Transmission Date: 20071010
  Serious: Yes (Other)
  Sender: FDA-Public Use
  Company Number: US-BAYER-200511154BWH

PATIENT
  Sex: Female

DRUGS (7)
  1. AVELOX [Suspect]
     Indication: PHARYNGOLARYNGEAL PAIN
     Route: 048
     Dates: start: 20050322, end: 20050329
  2. LEVOXYL [Concomitant]
     Indication: HYPOTHYROIDISM
  3. VITAMIN CAP [Concomitant]
     Dates: start: 20050513
  4. PROBIOTICS [Concomitant]
  5. VITAMIN B COMPLEX CAP [Concomitant]
  6. ZOLOFT [Concomitant]
  7. ADDITIONAL SUPPLEMENTS (NOS) [Concomitant]

REACTIONS (40)
  - APTYALISM [None]
  - ARTHRALGIA [None]
  - AUTOIMMUNE DISORDER [None]
  - BRUXISM [None]
  - CANDIDIASIS [None]
  - CONNECTIVE TISSUE DISORDER [None]
  - DEPRESSION [None]
  - DRY MOUTH [None]
  - EAR PAIN [None]
  - EYE ALLERGY [None]
  - EYE DISORDER [None]
  - EYE HAEMORRHAGE [None]
  - EYE INFLAMMATION [None]
  - EYE SWELLING [None]
  - FATIGUE [None]
  - FOOD ALLERGY [None]
  - HALO VISION [None]
  - HEAD DISCOMFORT [None]
  - HYPERSENSITIVITY [None]
  - INFLAMMATION [None]
  - INSOMNIA [None]
  - LACRIMATION DECREASED [None]
  - MALAISE [None]
  - MIGRAINE [None]
  - NECK PAIN [None]
  - OCULAR HYPERAEMIA [None]
  - ORAL CANDIDIASIS [None]
  - ORAL DISCOMFORT [None]
  - ORAL PAIN [None]
  - PHOTOPHOBIA [None]
  - RHEUMATOID ARTHRITIS [None]
  - SCLERITIS [None]
  - SINUSITIS [None]
  - SWELLING FACE [None]
  - TEMPOROMANDIBULAR JOINT SYNDROME [None]
  - TINNITUS [None]
  - TONGUE DISCOLOURATION [None]
  - TOOTH DISCOLOURATION [None]
  - TRIGEMINAL NEURALGIA [None]
  - WEIGHT DECREASED [None]
